FAERS Safety Report 4812693-5 (Version None)
Quarter: 2005Q4

REPORT INFORMATION
  Report Type: 
  Country: None (occurrence: None)
  Receive Date: 20051028
  Receipt Date: 20041108
  Transmission Date: 20060501
  Serious: No
  Sender: FDA-Public Use
  Company Number: US-GLAXOSMITHKLINE-A0533089A

PATIENT
  Age: 74 Year
  Sex: Male
  Weight: 65.5 kg

DRUGS (3)
  1. ADVAIR DISKUS 100/50 [Suspect]
     Indication: ASTHMA
     Route: 055
     Dates: start: 20021101
  2. COMBIVENT [Concomitant]
  3. XALATAN [Concomitant]

REACTIONS (3)
  - DYSPNOEA [None]
  - DYSPNOEA EXERTIONAL [None]
  - PHARMACEUTICAL PRODUCT COMPLAINT [None]
